FAERS Safety Report 9816127 (Version 1)
Quarter: 2014Q1

REPORT INFORMATION
  Report Type: Report from Study
  Country: US (occurrence: US)
  Receive Date: 20140114
  Receipt Date: 20140114
  Transmission Date: 20141002
  Serious: Yes (Hospitalization)
  Sender: FDA-Public Use
  Company Number: US-JNJFOC-20140103877

PATIENT
  Age: 9 Year
  Sex: Male
  Weight: 34.9 kg

DRUGS (9)
  1. REMICADE [Suspect]
     Indication: CROHN^S DISEASE
     Route: 042
     Dates: start: 20120127
  2. 5-ASA [Concomitant]
     Route: 048
  3. HYDROCORTISONE [Concomitant]
     Route: 065
  4. PREDNISONE [Concomitant]
     Route: 065
  5. METHOTREXATE [Concomitant]
     Route: 065
  6. OMEPRAZOLE [Concomitant]
     Route: 065
  7. ASCORBIC ACID [Concomitant]
     Route: 065
  8. CALCIUM AND VITAMIN D [Concomitant]
     Route: 065
  9. MULTIVITAMINS [Concomitant]
     Route: 065

REACTIONS (1)
  - Inflammatory bowel disease [Recovered/Resolved]
